FAERS Safety Report 15632294 (Version 2)
Quarter: 2019Q1

REPORT INFORMATION
  Report Type: Spontaneous
  Country: US (occurrence: US)
  Receive Date: 20181119
  Receipt Date: 20190213
  Transmission Date: 20190417
  Serious: Yes (Other)
  Sender: FDA-Public Use
  Company Number: US-BRISTOL-MYERS SQUIBB COMPANY-BMS-2018-106871

PATIENT
  Age: 76 Year
  Sex: Male
  Weight: 104.3 kg

DRUGS (4)
  1. HUMIRA [Concomitant]
     Active Substance: ADALIMUMAB
     Indication: CROHN^S DISEASE
     Dosage: 40 MG, Q2WK
     Route: 065
     Dates: start: 20180921
  2. ELIQUIS [Suspect]
     Active Substance: APIXABAN
     Indication: DEEP VEIN THROMBOSIS
     Dosage: 10 MG, BID, FOR 7 DAYS
     Route: 048
     Dates: start: 20180723
  3. PREDNISONE. [Concomitant]
     Active Substance: PREDNISONE
     Indication: CROHN^S DISEASE
     Route: 065
  4. ELIQUIS [Suspect]
     Active Substance: APIXABAN
     Indication: PULMONARY EMBOLISM
     Dosage: 5 MG, BID
     Route: 048

REACTIONS (8)
  - Treatment failure [Unknown]
  - Head injury [Unknown]
  - Vertigo positional [Unknown]
  - Deep vein thrombosis [Unknown]
  - Thrombosis [Unknown]
  - Crohn^s disease [Unknown]
  - Fall [Unknown]
  - Haematuria [Unknown]

NARRATIVE: CASE EVENT DATE: 20180815
